FAERS Safety Report 8247811-2 (Version None)
Quarter: 2012Q1

REPORT INFORMATION
  Report Type: 
  Country: None (occurrence: None)
  Receive Date: 20120330
  Receipt Date: 20120320
  Transmission Date: 20120608
  Serious: Yes (Hospitalization)
  Sender: FDA-Public Use
  Company Number: US-BAYER-2011-110388

PATIENT
  Age: 38 Year
  Sex: Female
  Weight: 58.957 kg

DRUGS (14)
  1. ENBREL [Concomitant]
     Indication: FIBROMYALGIA
  2. FOCALIN [Concomitant]
     Dosage: UNK
     Dates: start: 20090831
  3. VICODIN [Concomitant]
  4. ENBREL [Concomitant]
     Indication: PSORIASIS
     Dosage: UNK
     Dates: start: 20030101
  5. CITALOPRAM HYDROBROMIDE [Concomitant]
     Indication: PREMENSTRUAL SYNDROME
  6. METHOTREXATE [Concomitant]
     Indication: PSORIASIS
     Dosage: AS NEEDED
     Dates: start: 20000101
  7. IMITREX [Concomitant]
     Indication: MIGRAINE
     Dosage: UNK
     Dates: start: 19850101
  8. MIGRANAL [Concomitant]
     Indication: MIGRAINE
     Dosage: UNK
     Dates: start: 19850101
  9. METHOTREXATE [Concomitant]
     Indication: FIBROMYALGIA
  10. CITALOPRAM HYDROBROMIDE [Concomitant]
     Indication: ANXIETY
     Dosage: AS NEEDED
     Dates: start: 20090825
  11. SUMATRIPTAN [Concomitant]
     Dosage: UNK
     Dates: start: 19850101
  12. YAZ [Suspect]
     Indication: CONTRACEPTION
     Dosage: UNK
     Dates: start: 20090708, end: 20090912
  13. YAZ [Suspect]
     Indication: PREMENSTRUAL SYNDROME
  14. ADDERALL 5 [Concomitant]
     Dosage: UNK
     Dates: start: 20090826

REACTIONS (9)
  - GENERAL PHYSICAL HEALTH DETERIORATION [None]
  - PRINZMETAL ANGINA [None]
  - ARTERIAL THROMBOSIS [None]
  - PAIN [None]
  - EMOTIONAL DISTRESS [None]
  - MYOCARDIAL INFARCTION [None]
  - MENTAL DISORDER [None]
  - CHEST PAIN [None]
  - ANXIETY [None]
